FAERS Safety Report 6915105-0 (Version None)
Quarter: 2010Q3

REPORT INFORMATION
  Report Type: 
  Country: None (occurrence: None)
  Receive Date: 20100805
  Receipt Date: 20100805
  Transmission Date: 20110219
  Serious: No
  Sender: FDA-Public Use
  Company Number: None

PATIENT
  Sex: Female

DRUGS (1)
  1. ZONISAMIDE [Suspect]
     Dosage: 6 TABLETS DAILY PO, 3 YRS AGO
     Route: 048

REACTIONS (2)
  - CONVULSION [None]
  - UNDERWEIGHT [None]
